FAERS Safety Report 8775127 (Version 2)
Quarter: 2013Q4

REPORT INFORMATION
  Report Type: Report from Study
  Country: JP (occurrence: JP)
  Receive Date: 20120910
  Receipt Date: 20131108
  Transmission Date: 20140711
  Serious: Yes (Other)
  Sender: FDA-Public Use
  Company Number: JP-009507513-1209JPN000686

PATIENT
  Age: 73 Year
  Sex: Female
  Weight: 66 kg

DRUGS (9)
  1. REBETOL [Suspect]
     Indication: HEPATITIS C
     Dosage: 200 MG, BID
     Route: 048
     Dates: start: 20110916, end: 20110916
  2. REBETOL [Suspect]
     Dosage: 400 MG, BID
     Route: 048
     Dates: start: 20110917, end: 20111027
  3. REBETOL [Suspect]
     Dosage: 200 MG, QD
     Route: 048
     Dates: start: 20111028, end: 20111110
  4. REBETOL [Suspect]
     Dosage: 200 MG QAM, 400 MG QPM
     Route: 048
     Dates: start: 20111111, end: 20111227
  5. FERON [Suspect]
     Indication: HEPATITIS C
     Dosage: 3 MILLION IU, QD
     Route: 042
     Dates: start: 20110916, end: 20110916
  6. FERON [Suspect]
     Dosage: 3 MILLION IU, BID
     Route: 042
     Dates: start: 20110917, end: 20110919
  7. FERON [Suspect]
     Dosage: 3 MILLION IU, QD
     Route: 042
     Dates: start: 20110920, end: 20110930
  8. LOXOPROFEN [Concomitant]
     Indication: PROPHYLAXIS
     Dosage: 120 MG, UNK
     Route: 048
     Dates: start: 20110916, end: 20111227
  9. MUCOSTA [Concomitant]
     Indication: PROPHYLAXIS AGAINST GASTROINTESTINAL ULCER
     Dosage: 200 MG, UNK
     Route: 048
     Dates: start: 20110916, end: 20111227

REACTIONS (2)
  - Neutrophil count decreased [Recovered/Resolved]
  - Pyrexia [Recovered/Resolved]
